FAERS Safety Report 6383398-7 (Version None)
Quarter: 2009Q4

REPORT INFORMATION
  Report Type: 
  Country: None (occurrence: None)
  Receive Date: 20091001
  Receipt Date: 20090515
  Transmission Date: 20100525
  Serious: No
  Sender: FDA-Public Use
  Company Number: US-BAYER-200920083NA

PATIENT
  Sex: Female

DRUGS (2)
  1. BETASERON [Suspect]
     Indication: RELAPSING-REMITTING MULTIPLE SCLEROSIS
     Dosage: SYRINGE BROKE AND BETASERON SPILLED ONTO SKIN
     Dates: start: 20090321, end: 20090321
  2. BETASERON [Suspect]
     Dosage: SYRINGE BROKE AND BETASERON SPILLED ONTO SKIN
     Dates: start: 20090323, end: 20090323

REACTIONS (2)
  - ACCIDENTAL EXPOSURE [None]
  - URTICARIA [None]
